FAERS Safety Report 4412751-3 (Version None)
Quarter: 2004Q2

REPORT INFORMATION
  Report Type: 
  Country: None (occurrence: None)
  Receive Date: 20040630
  Receipt Date: 20040309
  Transmission Date: 20050107
  Serious: No
  Sender: FDA-Public Use
  Company Number: 04P-163-0253151-00

PATIENT
  Age: 49 Year
  Sex: Male
  Weight: 83.9154 kg

DRUGS (4)
  1. HUMIRA [Suspect]
     Indication: RHEUMATOID ARTHRITIS
     Dosage: 40 MG, 1 IN 2 WK, PER ORAL
     Route: 048
     Dates: start: 20040119, end: 20040216
  2. PREDNISONE [Concomitant]
  3. FOLIC ACID [Concomitant]
  4. OXCOCET [Concomitant]

REACTIONS (2)
  - SWELLING FACE [None]
  - VISION BLURRED [None]
